FAERS Safety Report 25131105 (Version 1)
Quarter: 2025Q1

REPORT INFORMATION
  Report Type: Other
  Country: CN (occurrence: CN)
  Receive Date: 20250327
  Receipt Date: 20250327
  Transmission Date: 20250408
  Serious: Yes (Life-Threatening, Hospitalization, Other)
  Sender: LYNE LABORATORIES
  Company Number: CN-Lyne Laboratories Inc.-2173779

PATIENT
  Age: 26 Year
  Sex: Female

DRUGS (2)
  1. CLINDAMYCIN PALMITATE HYDROCHLORIDE [Suspect]
     Active Substance: CLINDAMYCIN PALMITATE HYDROCHLORIDE
     Indication: Product used for unknown indication
  2. CEFMETAZOLE [Suspect]
     Active Substance: CEFMETAZOLE

REACTIONS (2)
  - Anaphylactic reaction [Recovering/Resolving]
  - Anaphylactic shock [Recovering/Resolving]
